FAERS Safety Report 5356927-X (Version None)
Quarter: 2007Q2

REPORT INFORMATION
  Report Type: 
  Country: None (occurrence: None)
  Receive Date: 20070614
  Receipt Date: 20070601
  Transmission Date: 20071010
  Serious: Yes (Life-Threatening, Hospitalization, Other)
  Sender: FDA-Public Use
  Company Number: JP-PFIZER INC-2007029811

PATIENT
  Sex: Male
  Weight: 46 kg

DRUGS (18)
  1. CABERGOLINE [Suspect]
     Indication: PARKINSON'S DISEASE
     Route: 048
  2. ANTI-PARKINSON AGENTS [Concomitant]
     Route: 048
  3. SELEGILINE HCL [Concomitant]
     Route: 048
  4. MADOPAR [Concomitant]
  5. SEROQUEL [Concomitant]
     Route: 048
  6. THYRADIN S [Concomitant]
     Route: 048
  7. GASTER [Concomitant]
  8. LENDORMIN [Concomitant]
     Route: 048
  9. MAGNESIUM OXIDE [Concomitant]
     Route: 048
  10. PARLODEL [Concomitant]
     Route: 048
  11. SYMMETREL [Concomitant]
     Route: 048
  12. DOPS [Concomitant]
     Route: 048
  13. ARTANE [Concomitant]
     Route: 048
  14. LASIX [Concomitant]
  15. DAI-KENCHU-TO [Concomitant]
     Route: 048
  16. TICLOPIDINE HCL [Concomitant]
     Route: 048
  17. LAXOBERON [Concomitant]
     Route: 048
  18. ALDACTONE [Concomitant]
     Route: 048

REACTIONS (11)
  - BLOOD CREATINE PHOSPHOKINASE INCREASED [None]
  - CARDIAC VALVE DISEASE [None]
  - CONSTIPATION [None]
  - DYSPNOEA PAROXYSMAL NOCTURNAL [None]
  - HAEMODYNAMIC INSTABILITY [None]
  - ILEUS [None]
  - MEGACOLON [None]
  - PARKINSON'S DISEASE [None]
  - PYREXIA [None]
  - RESPIRATORY DISORDER [None]
  - WHITE BLOOD CELL COUNT INCREASED [None]
